FAERS Safety Report 5935696-6 (Version None)
Quarter: 2008Q4

REPORT INFORMATION
  Report Type: 
  Country: None (occurrence: None)
  Receive Date: 20081030
  Receipt Date: 20081022
  Transmission Date: 20090506
  Serious: Yes (Other)
  Sender: FDA-Public Use
  Company Number: US-WATSON-2008-06320

PATIENT
  Age: 51 Year
  Sex: Female

DRUGS (2)
  1. BETAMETHASONE SODIUM PHOSPHATE (WATSON LABORATORIES) [Suspect]
     Indication: TENDONITIS
     Dosage: 2 ML SUBACROMIAL INJECTION
     Dates: start: 20080101
  2. LIDOCAINE [Concomitant]
     Indication: TENDONITIS
     Dosage: 8 ML 1% SUBACROMIAL INJECTION
     Dates: start: 20080101

REACTIONS (1)
  - FALSE POSITIVE LABORATORY RESULT [None]
